FAERS Safety Report 8576232-8 (Version None)
Quarter: 2012Q3

REPORT INFORMATION
  Report Type: 
  Country: None (occurrence: None)
  Receive Date: 20120724
  Receipt Date: 20120709
  Transmission Date: 20120928
  Serious: Yes (Hospitalization)
  Sender: FDA-Public Use
  Company Number: 2012SGN00279

PATIENT
  Age: 46 Year
  Sex: Female
  Weight: 43.5 kg

DRUGS (7)
  1. ACYCLOVIR [Concomitant]
  2. ETILEFRINE (ETILEFRINE) [Concomitant]
  3. SULFAMETHOXAZOLE AND TRIMETHOPRIM [Concomitant]
  4. MEGESTROL ACETATE [Concomitant]
  5. BRENTUXIMAB VEDOTIN/PLACEBO (BRENTUXIMAB VEDOTIN/PLACEBO) INJECTION [Suspect]
     Indication: HODGKIN'S DISEASE
     Dosage: 1.8 MG/KG, Q21D, INTRAVENOUS
     Route: 042
     Dates: start: 20120412, end: 20120523
  6. ONDANSETRON [Concomitant]
  7. POTASSIUM (POTASSIUM CHLORIDE) [Concomitant]

REACTIONS (19)
  - FOLATE DEFICIENCY [None]
  - HYPOTONIA [None]
  - TRICUSPID VALVE INCOMPETENCE [None]
  - WHITE BLOOD CELL COUNT DECREASED [None]
  - ALVEOLITIS ALLERGIC [None]
  - PERICARDIAL EFFUSION [None]
  - TACHYCARDIA [None]
  - SECONDARY IMMUNODEFICIENCY [None]
  - SECONDARY ADRENOCORTICAL INSUFFICIENCY [None]
  - C-REACTIVE PROTEIN INCREASED [None]
  - VENTRICULAR HYPOKINESIA [None]
  - ELECTROCARDIOGRAM QT PROLONGED [None]
  - ASTHENIA [None]
  - ESCHERICHIA URINARY TRACT INFECTION [None]
  - PNEUMONIA PRIMARY ATYPICAL [None]
  - RED BLOOD CELL COUNT DECREASED [None]
  - BLOOD PRESSURE DECREASED [None]
  - VITAMIN B12 DEFICIENCY [None]
  - EMPTY SELLA SYNDROME [None]
